FAERS Safety Report 4604897-1 (Version None)
Quarter: 2005Q1

REPORT INFORMATION
  Report Type: 
  Country: None (occurrence: None)
  Receive Date: 20050310
  Receipt Date: 20050310
  Transmission Date: 20050727
  Serious: Yes (Hospitalization)
  Sender: FDA-Public Use
  Company Number: None

PATIENT
  Age: 44 Year
  Sex: Male

DRUGS (6)
  1. DYAZIDE [Suspect]
     Indication: HYPERTENSION
     Dosage: ONE TAB   DAILY  ORAL
     Route: 048
     Dates: start: 20041202, end: 20041226
  2. IBUPROFEN [Suspect]
     Indication: PAIN
     Dosage: 800MG   TID   ORAL
     Route: 048
     Dates: start: 20040701, end: 20040701
  3. LISINOPRIL [Concomitant]
  4. NABUMETONE [Concomitant]
  5. LANTUS [Concomitant]
  6. NOVOLOG [Concomitant]

REACTIONS (1)
  - PANCREATITIS [None]
